FAERS Safety Report 17829527 (Version 1)
Quarter: 2020Q2

REPORT INFORMATION
  Report Type: Spontaneous
  Country: US (occurrence: US)
  Receive Date: 20200527
  Receipt Date: 20200527
  Transmission Date: 20200714
  Serious: Yes (Other)
  Sender: FDA-Public Use
  Company Number: US-TEVA-2020-US-1240939

PATIENT
  Sex: Female

DRUGS (1)
  1. SPRINTEC [Suspect]
     Active Substance: ETHINYL ESTRADIOL\NORGESTIMATE
     Indication: CONTRACEPTION
     Route: 065

REACTIONS (11)
  - Product substitution issue [Unknown]
  - Poor quality sleep [Unknown]
  - Anger [Unknown]
  - Crying [Unknown]
  - Inappropriate schedule of product administration [Unknown]
  - Mood swings [Unknown]
  - Renal pain [Unknown]
  - Back pain [Unknown]
  - Aggression [Unknown]
  - Feeling hot [Unknown]
  - Pain [Unknown]
